FAERS Safety Report 20669069 (Version 1)
Quarter: 2022Q2

REPORT INFORMATION
  Report Type: Spontaneous
  Country: US (occurrence: None)
  Receive Date: 20220402
  Receipt Date: 20220402
  Transmission Date: 20220721
  Serious: No
  Sender: FDA-Public Use
  Company Number: None

PATIENT
  Age: 59 Year
  Sex: Male
  Weight: 101.25 kg

DRUGS (7)
  1. TESTOSTERONE GEL [Suspect]
     Active Substance: TESTOSTERONE
     Indication: Blood testosterone decreased
     Dosage: OTHER QUANTITY : 1 PUMP;?FREQUENCY : DAILY;?
     Route: 061
     Dates: start: 20060701
  2. LISINOPRIL [Concomitant]
     Active Substance: LISINOPRIL
  3. Anlopodine Besylate [Concomitant]
  4. FENOFIBRIC ACID [Concomitant]
     Active Substance: FENOFIBRIC ACID
  5. Simbicorte [Concomitant]
  6. VITAMIN D [Concomitant]
     Active Substance: VITAMIN D NOS
  7. LOW DOSE ASPIRIN [Concomitant]
     Active Substance: ASPIRIN

REACTIONS (4)
  - Condition aggravated [None]
  - Therapeutic product ineffective [None]
  - Product quality issue [None]
  - Blood testosterone decreased [None]

NARRATIVE: CASE EVENT DATE: 20220331
